FAERS Safety Report 24448261 (Version 1)
Quarter: 2024Q4

REPORT INFORMATION
  Report Type: Report from Study
  Country: DE (occurrence: DE)
  Receive Date: 20241017
  Receipt Date: 20241017
  Transmission Date: 20250114
  Serious: Yes (Hospitalization, Other)
  Sender: UCB
  Company Number: DE-UCBSA-2023048669

PATIENT
  Sex: Female

DRUGS (5)
  1. CERTOLIZUMAB PEGOL [Suspect]
     Active Substance: CERTOLIZUMAB PEGOL
     Indication: Product used for unknown indication
     Dosage: 200 MILLIGRAM, EV 2 WEEKS(QOW)
     Dates: end: 20231215
  2. METHOTREXATE SODIUM [Suspect]
     Active Substance: METHOTREXATE SODIUM
     Indication: Product used for unknown indication
     Dosage: 15 MILLIGRAM, WEEKLY (QW)
     Dates: end: 202312
  3. CHOLECALCIFEROL [Concomitant]
     Active Substance: CHOLECALCIFEROL
  4. LEVOTHYROXINE [Concomitant]
     Active Substance: LEVOTHYROXINE
  5. FOLIC ACID [Concomitant]
     Active Substance: FOLIC ACID

REACTIONS (11)
  - Rheumatoid arthritis [Recovered/Resolved]
  - Somatic symptom disorder [Unknown]
  - Herpes zoster oticus [Recovered/Resolved]
  - Urinary tract infection enterococcal [Recovered/Resolved]
  - Depression [Unknown]
  - Fatigue [Unknown]
  - Oral herpes [Recovered/Resolved]
  - Upper respiratory tract infection [Recovered/Resolved]
  - Obesity [Unknown]
  - Conjunctivitis [Recovered/Resolved]
  - Asthma [Recovered/Resolved]

NARRATIVE: CASE EVENT DATE: 20221201
